FAERS Safety Report 8172067 (Version 3)
Quarter: 2014Q1

REPORT INFORMATION
  Report Type: Spontaneous
  Country: US (occurrence: US)
  Receive Date: 20111007
  Receipt Date: 20140206
  Transmission Date: 20141002
  Serious: Yes (Hospitalization)
  Sender: FDA-Public Use
  Company Number: US-JNJFOC-20111000789

PATIENT
  Sex: Female
  Weight: 77.11 kg

DRUGS (6)
  1. DURAGESIC [Suspect]
     Indication: BACK PAIN
     Route: 062
     Dates: start: 2007
  2. DURAGESIC [Suspect]
     Indication: BACK PAIN
     Route: 062
  3. LORTAB [Suspect]
     Indication: PAIN
     Route: 048
     Dates: start: 2003
  4. ENABLEX [Concomitant]
     Indication: BLADDER DISORDER
     Route: 048
     Dates: start: 2008
  5. ZOCOR [Concomitant]
     Route: 048
     Dates: start: 2007
  6. NAPROXEN [Concomitant]
     Indication: PAIN
     Route: 048

REACTIONS (4)
  - Ovarian enlargement [Recovered/Resolved]
  - Urinary incontinence [Not Recovered/Not Resolved]
  - Wrong technique in drug usage process [Not Recovered/Not Resolved]
  - Product quality issue [Unknown]
